FAERS Safety Report 11198589 (Version 1)
Quarter: 2015Q2

REPORT INFORMATION
  Report Type: Spontaneous
  Country: US (occurrence: US)
  Receive Date: 20150618
  Receipt Date: 20150618
  Transmission Date: 20150821
  Serious: No
  Sender: FDA-Public Use
  Company Number: US-BAYER-2015-351511

PATIENT
  Age: 52 Year
  Sex: Female

DRUGS (2)
  1. MAGNEVIST [Suspect]
     Active Substance: GADOPENTETATE DIMEGLUMINE
     Indication: PANCREATIC DISORDER
  2. MAGNEVIST [Suspect]
     Active Substance: GADOPENTETATE DIMEGLUMINE
     Indication: COMPUTERISED TOMOGRAM PELVIS
     Dosage: 13 ML, ONCE
     Route: 042
     Dates: start: 20150612, end: 20150612

REACTIONS (2)
  - Off label use [None]
  - Urticaria [Recovered/Resolved]

NARRATIVE: CASE EVENT DATE: 20150612
